FAERS Safety Report 7556565-4 (Version None)
Quarter: 2011Q2

REPORT INFORMATION
  Report Type: 
  Country: None (occurrence: None)
  Receive Date: 20110620
  Receipt Date: 20110609
  Transmission Date: 20111010
  Serious: No
  Sender: FDA-Public Use
  Company Number: CA-ELI_LILLY_AND_COMPANY-CA201103005919

PATIENT
  Age: 70 Year
  Sex: Female

DRUGS (6)
  1. RABEPRAZOLE SODIUM [Concomitant]
     Route: 065
  2. FORTEO [Suspect]
     Dosage: 20 UG, QD
     Route: 058
     Dates: start: 20110417
  3. THYROID TAB [Concomitant]
     Route: 065
  4. WARFARIN SODIUM [Concomitant]
     Route: 065
  5. FORTEO [Suspect]
     Indication: OSTEOPOROSIS
     Dosage: 20 UG, QD
     Route: 058
     Dates: start: 20100920, end: 20110415
  6. SLEEPING [Concomitant]

REACTIONS (9)
  - HEADACHE [None]
  - BACK PAIN [None]
  - MUSCLE STRAIN [None]
  - MUSCLE SPASMS [None]
  - MUSCULOSKELETAL PAIN [None]
  - DYSPNOEA [None]
  - BLOOD PRESSURE INCREASED [None]
  - HEART RATE INCREASED [None]
  - INTENTIONAL DRUG MISUSE [None]
